FAERS Safety Report 10323849 (Version 2)
Quarter: 2015Q1

REPORT INFORMATION
  Report Type: Other
  Country: US (occurrence: US)
  Receive Date: 20140720
  Receipt Date: 20150212
  Transmission Date: 20150720
  Serious: Yes (Death, Hospitalization, Other)
  Sender: FDA-Public Use
  Company Number: US-GSKPPD-2014GSK040595

PATIENT
  Age: 70 Year
  Sex: Female
  Weight: 100.33 kg

DRUGS (6)
  1. EPINEPHRINE. [Concomitant]
     Active Substance: EPINEPHRINE
     Dates: start: 20010501, end: 20010501
  2. MORPHINE [Concomitant]
     Active Substance: MORPHINE
     Dates: start: 20010425, end: 20010425
  3. AVANDIA [Suspect]
     Active Substance: ROSIGLITAZONE MALEATE
     Indication: DIABETES MELLITUS
     Dosage: DATES OF AVANDIA USE COULD NOT BE CONFIRMED IN RECORDS REVIEWED
     Route: 048
  4. MAVIK [Concomitant]
     Active Substance: TRANDOLAPRIL
     Dates: start: 1999
  5. FUROSEMIDE. [Concomitant]
     Active Substance: FUROSEMIDE
     Dates: start: 1999
  6. ATROPINE [Concomitant]
     Active Substance: ATROPINE
     Dates: start: 20010501, end: 20010501

REACTIONS (2)
  - Cardio-respiratory arrest [Fatal]
  - Cardiac failure congestive [Recovered/Resolved]

NARRATIVE: CASE EVENT DATE: 19990822
